FAERS Safety Report 5840724-2 (Version None)
Quarter: 2008Q3

REPORT INFORMATION
  Report Type: 
  Country: None (occurrence: None)
  Receive Date: 20080811
  Receipt Date: 20080807
  Transmission Date: 20090109
  Serious: Yes (Life-Threatening, Hospitalization)
  Sender: FDA-Public Use
  Company Number: OM-ASTRAZENECA-2008AC02130

PATIENT
  Age: 8 Month
  Sex: Female

DRUGS (4)
  1. BUDESONIDE [Suspect]
     Indication: BRONCHITIS
  2. ADRENALINE [Concomitant]
     Indication: BRONCHITIS
     Dosage: NEBULISED
  3. DEXAMETHASONE [Concomitant]
     Indication: BRONCHITIS
     Route: 042
  4. NYSTATIN [Concomitant]
     Indication: ORAL CANDIDIASIS

REACTIONS (1)
  - LARYNGITIS FUNGAL [None]
